FAERS Safety Report 8811150 (Version 3)
Quarter: 2013Q1

REPORT INFORMATION
  Report Type: Spontaneous
  Country: CA (occurrence: CA)
  Receive Date: 20120927
  Receipt Date: 20130116
  Transmission Date: 20140127
  Serious: Yes (Life-Threatening, Other)
  Sender: FDA-Public Use
  Company Number: PHHY2010CA34558

PATIENT
  Age: 78 Year
  Sex: Female

DRUGS (10)
  1. ACLASTA [Suspect]
     Indication: OSTEOPOROSIS
     Dosage: 5 MG, UNK
     Route: 042
     Dates: start: 20100512
  2. ACLASTA [Suspect]
     Dosage: 5 MG, UNK
     Route: 042
     Dates: start: 20111201
  3. COUMADINE [Concomitant]
  4. VERAPAMIL [Concomitant]
  5. FENTANYL [Concomitant]
  6. PANTOPRAZOLE [Concomitant]
  7. SENOKOT                                 /UNK/ [Concomitant]
  8. OXAZEPAM [Concomitant]
  9. FOLIC ACID [Concomitant]
  10. PREDNISONE [Concomitant]

REACTIONS (12)
  - Feeling abnormal [Unknown]
  - Psychotic disorder [Unknown]
  - Confusional state [Recovered/Resolved]
  - Hyperhidrosis [Recovered/Resolved]
  - Ligament sprain [Unknown]
  - Rhinorrhoea [Unknown]
  - Bone pain [Unknown]
  - Back pain [Unknown]
  - Influenza [Recovered/Resolved]
  - Pyrexia [Recovered/Resolved]
  - Chills [Recovered/Resolved]
  - Fatigue [Unknown]
